FAERS Safety Report 9135814 (Version 1)
Quarter: 2013Q1

REPORT INFORMATION
  Report Type: Spontaneous
  Country: US (occurrence: US)
  Receive Date: 20130304
  Receipt Date: 20130304
  Transmission Date: 20140127
  Serious: No
  Sender: FDA-Public Use
  Company Number: US-ABBOTT-12P-163-0920759-00

PATIENT
  Sex: Male
  Weight: 79.45 kg

DRUGS (4)
  1. ANDROGEL 1% [Suspect]
     Indication: BLOOD TESTOSTERONE DECREASED
     Dosage: 5 PUMPS PER DAY
     Dates: start: 201201
  2. ANDROGEL 1% [Suspect]
     Dosage: 3 PUMPS PER DAY
     Dates: start: 201111, end: 201201
  3. DIOVAN [Concomitant]
     Indication: HYPERTENSION
  4. AMLODIPINE BESYLATE [Concomitant]
     Indication: HYPERTENSION

REACTIONS (1)
  - Drug ineffective [Not Recovered/Not Resolved]
